FAERS Safety Report 9919705 (Version 2)
Quarter: 2014Q1

REPORT INFORMATION
  Report Type: Report from Study
  Country: JP (occurrence: JP)
  Receive Date: 20140224
  Receipt Date: 20140328
  Transmission Date: 20141002
  Serious: Yes (Death, Life-Threatening, Other)
  Sender: FDA-Public Use
  Company Number: JP-BAYER-2014-025248

PATIENT
  Age: 83 Year
  Sex: Male
  Weight: 55.3 kg

DRUGS (9)
  1. BAYASPIRIN, TABLETS [Suspect]
     Indication: THROMBOSIS PROPHYLAXIS
     Dosage: DAILY DOSE 100 MG
     Route: 048
     Dates: start: 20090403, end: 20090407
  2. BAYASPIRIN, TABLETS [Suspect]
     Indication: THROMBOSIS PROPHYLAXIS
     Dosage: DAILY DOSE 100 MG
     Route: 048
     Dates: start: 20090409, end: 20090415
  3. ARTIST [Concomitant]
     Indication: CARDIAC FAILURE
     Dosage: DAILY DOSE 20 MG
     Route: 048
     Dates: start: 20090403
  4. AMLODIPINE [Concomitant]
     Indication: HYPERTENSION
     Dosage: DAILY DOSE 5 MG
     Route: 048
     Dates: start: 20090403
  5. ZYLORIC [Concomitant]
     Indication: HYPERURICAEMIA
     Dosage: DAILY DOSE 100 MG
     Route: 048
     Dates: start: 20090403
  6. GLYCYRON [AMINOACETIC ACID,DL-METHIONINE,GLYCYRRHIZIC ACID] [Concomitant]
     Dosage: DAILY DOSE 100 MG
     Route: 048
     Dates: start: 20090403
  7. METHYCOBAL [Concomitant]
     Dosage: DAILY DOSE 1500 ?G
     Route: 048
     Dates: start: 20090403
  8. MEVALOTIN [Concomitant]
     Dosage: DAILY DOSE 30 MG
     Route: 048
     Dates: start: 20090403
  9. SPIRIVA [Concomitant]
     Indication: CHRONIC OBSTRUCTIVE PULMONARY DISEASE
     Dosage: DAILY DOSE 1 DF
     Route: 055
     Dates: start: 20090403

REACTIONS (5)
  - Post procedural haemorrhage [Recovered/Resolved]
  - Myocardial infarction [None]
  - Ventricular septal defect acquired [Fatal]
  - Cardiac failure [Fatal]
  - Drug ineffective [None]
